FAERS Safety Report 9618919 (Version 1)
Quarter: 2013Q4

REPORT INFORMATION
  Report Type: Spontaneous
  Country: ES (occurrence: ES)
  Receive Date: 20131014
  Receipt Date: 20131014
  Transmission Date: 20140711
  Serious: Yes (Hospitalization)
  Sender: FDA-Public Use
  Company Number: ES-009507513-1310ESP002287

PATIENT
  Age: 69 Year
  Sex: Female

DRUGS (11)
  1. AMITRIPTYLINE HYDROCHLORIDE [Suspect]
     Indication: DEPRESSION
     Dosage: 25 MG, QD
     Route: 048
     Dates: start: 20121011, end: 20121202
  2. LOSARTAN POTASSIUM [Interacting]
     Indication: HYPERTENSION
     Dosage: 100 MG, QD
     Route: 048
     Dates: start: 20120808, end: 20121202
  3. FUROSEMIDE [Interacting]
     Indication: CARDIAC FAILURE CONGESTIVE
     Dosage: 40 MG, QD
     Route: 048
     Dates: start: 20121108, end: 20121202
  4. JALRA [Concomitant]
     Indication: TYPE 2 DIABETES MELLITUS
     Dosage: 50 MG, QD
     Route: 048
     Dates: start: 20121108, end: 20121202
  5. AERIUS (DESLORATADINE) [Concomitant]
     Indication: ASTHMA
     Dosage: 5 MG, DAYS
     Route: 048
     Dates: end: 20121202
  6. RILAST [Concomitant]
     Indication: ASTHMA
     Dosage: UNK
     Route: 055
     Dates: start: 2007
  7. AMLODIPINE [Concomitant]
     Indication: HYPERTENSION
     Dosage: 5 MG, QD
     Route: 048
     Dates: start: 2010
  8. ATENOLOL [Concomitant]
     Indication: CARDIAC FAILURE CONGESTIVE
     Dosage: 50 MG, QD
     Route: 048
     Dates: start: 20121109, end: 20121202
  9. OMEPRAZOLE [Concomitant]
     Indication: PROPHYLAXIS AGAINST GASTROINTESTINAL ULCER
     Dosage: 20 MG, QD
     Route: 048
     Dates: start: 20121108, end: 20121202
  10. PROTELOS [Concomitant]
     Indication: OSTEOPOROSIS
     Dosage: 2 G, QD
     Route: 048
     Dates: start: 20121108, end: 20121202
  11. SINTROM [Concomitant]
     Indication: ATRIAL FIBRILLATION
     Dosage: UNK
     Route: 048
     Dates: start: 2010

REACTIONS (1)
  - Hyponatraemia [Recovered/Resolved]
